FAERS Safety Report 8462946-7 (Version None)
Quarter: 2012Q2

REPORT INFORMATION
  Report Type: 
  Country: None (occurrence: None)
  Receive Date: 20120625
  Receipt Date: 20120613
  Transmission Date: 20120825
  Serious: Yes (Hospitalization)
  Sender: FDA-Public Use
  Company Number: ZA-ROCHE-1072930

PATIENT
  Sex: Female
  Weight: 82.2 kg

DRUGS (11)
  1. BRAZEPAM [Concomitant]
     Dates: start: 20110916
  2. STILPANE TABLETS [Concomitant]
     Dates: start: 20100101
  3. NUZAK [Concomitant]
     Dates: start: 20110729
  4. CELEBREX [Concomitant]
     Dates: start: 20100101
  5. CHOLECALCIFEROL [Concomitant]
     Dates: start: 20110304
  6. PREDNISOLONE [Concomitant]
     Dates: start: 20110623
  7. ASPIRIN [Concomitant]
     Dates: start: 20120330
  8. ACTEMRA [Suspect]
     Indication: RHEUMATOID ARTHRITIS
     Dosage: LAST DOSE PRIOR TO SAE:26/APR/2012
     Route: 042
     Dates: start: 20110304, end: 20120525
  9. AMITRIPTYLINE HCL [Concomitant]
     Dates: start: 20070101
  10. PLACEBO [Suspect]
     Indication: RHEUMATOID ARTHRITIS
     Dosage: LAST DOSE PRIOR TO SAE: 18/MAY/2012
     Route: 048
     Dates: start: 20110304, end: 20120525
  11. FOLIC ACID [Concomitant]
     Dates: start: 20110304

REACTIONS (3)
  - AORTIC ARTERIOSCLEROSIS [None]
  - INFARCTION [None]
  - PERIPHERAL VASCULAR DISORDER [None]
